FAERS Safety Report 20193918 (Version 1)
Quarter: 2021Q4

REPORT INFORMATION
  Report Type: Spontaneous
  Country: US (occurrence: US)
  Receive Date: 20211216
  Receipt Date: 20211216
  Transmission Date: 20220303
  Serious: No
  Sender: FDA-Public Use
  Company Number: US-LUPIN PHARMACEUTICALS INC.-2021-24538

PATIENT
  Age: 80 Year
  Sex: Male

DRUGS (3)
  1. HYDROCORTISONE [Suspect]
     Active Substance: HYDROCORTISONE
     Indication: Haematochezia
     Dosage: UNK (SUPPOSITORIES)
     Route: 054
  2. PENTOXIFYLLINE [Suspect]
     Active Substance: PENTOXIFYLLINE
     Indication: Haematochezia
     Dosage: UNK
     Route: 065
  3. MESALAMINE [Concomitant]
     Active Substance: MESALAMINE
     Indication: Radiation proctitis
     Dosage: UNK
     Route: 054

REACTIONS (1)
  - Drug ineffective [Unknown]
